FAERS Safety Report 11127916 (Version 1)
Quarter: 2015Q2

REPORT INFORMATION
  Report Type: Other
  Country: GB (occurrence: GB)
  Receive Date: 20150521
  Receipt Date: 20150521
  Transmission Date: 20150821
  Serious: Yes (Other)
  Sender: FDA-Public Use
  Company Number: GB-MYLANLABS-2015M1015631

PATIENT

DRUGS (1)
  1. LORATADINE 10 MG FILM-COATED TABLETS [Suspect]
     Active Substance: LORATADINE

REACTIONS (2)
  - Speech disorder [Recovered/Resolved]
  - Throat tightness [Recovered/Resolved]
